FAERS Safety Report 4731933-4 (Version None)
Quarter: 2005Q3

REPORT INFORMATION
  Report Type: 
  Country: None (occurrence: None)
  Receive Date: 20050802
  Receipt Date: 20050802
  Transmission Date: 20060218
  Serious: Yes (Hospitalization)
  Sender: FDA-Public Use
  Company Number: None

PATIENT
  Age: 32 Year
  Sex: Female
  Weight: 53.5244 kg

DRUGS (1)
  1. STRATTERA [Suspect]
     Indication: ATTENTION DEFICIT/HYPERACTIVITY DISORDER
     Dosage: 1 CAPSULE 1X A DAY ORAL
     Route: 048
     Dates: start: 20050411, end: 20050422

REACTIONS (7)
  - AGITATION [None]
  - HEART RATE INCREASED [None]
  - HYPOAESTHESIA [None]
  - MYDRIASIS [None]
  - PALPITATIONS [None]
  - TENSION [None]
  - URINARY INCONTINENCE [None]
